FAERS Safety Report 7731730-1 (Version None)
Quarter: 2011Q3

REPORT INFORMATION
  Report Type: 
  Country: None (occurrence: None)
  Receive Date: 20110906
  Receipt Date: 20110629
  Transmission Date: 20111222
  Serious: No
  Sender: FDA-Public Use
  Company Number: US-AMGEN-USASP2011033420

PATIENT
  Age: 62 Year
  Sex: Female

DRUGS (4)
  1. PROLIA [Suspect]
     Indication: OSTEOPOROSIS POSTMENOPAUSAL
     Dosage: UNK
     Dates: start: 20110101
  2. VITAMIN D [Concomitant]
     Dosage: UNK
  3. METAMUCIL PLUS CALCIUM [Concomitant]
     Dosage: UNK
  4. LOVAZA [Concomitant]
     Dosage: UNK, ONE TIME DOSE

REACTIONS (4)
  - DIZZINESS [None]
  - APHAGIA [None]
  - MYALGIA [None]
  - INFLUENZA LIKE ILLNESS [None]
